FAERS Safety Report 8392576 (Version 4)
Quarter: 2014Q1

REPORT INFORMATION
  Report Type: Report from Study
  Country: JP (occurrence: JP)
  Receive Date: 20120206
  Receipt Date: 20140305
  Transmission Date: 20141002
  Serious: Yes (Death, Life-Threatening, Hospitalization, Other)
  Sender: FDA-Public Use
  Company Number: JP-PFIZER INC-2012026676

PATIENT
  Age: 69 Year
  Sex: Male
  Weight: 56.6 kg

DRUGS (5)
  1. TORISEL [Suspect]
     Indication: RENAL CELL CARCINOMA
     Dosage: 25 MG, WEEKLY
     Route: 041
     Dates: start: 20111115, end: 20111129
  2. TORISEL [Suspect]
     Dosage: 25 MG, WEEKLY
     Route: 041
     Dates: start: 20111220, end: 20111227
  3. RESTAMIN KOWA [Concomitant]
     Indication: PROPHYLAXIS
     Dosage: 50 MG, 1X/DAY (WITH EVERY TEMSIROLIMUS ADMINISTRATION)
     Route: 048
     Dates: start: 20111115
  4. KENALOG [Concomitant]
     Indication: PROPHYLAXIS
     Dosage: AS NEEDED
     Route: 061
     Dates: end: 20111227
  5. HACHIAZULE [Concomitant]
     Indication: PROPHYLAXIS
     Dosage: 6 G, 3X/DAY

REACTIONS (3)
  - Pneumocystis jirovecii pneumonia [Fatal]
  - Interstitial lung disease [Not Recovered/Not Resolved]
  - Pneumonia bacterial [Recovering/Resolving]
